FAERS Safety Report 14202320 (Version 2)
Quarter: 2018Q1

REPORT INFORMATION
  Report Type: Spontaneous
  Country: US (occurrence: US)
  Receive Date: 20171117
  Receipt Date: 20180213
  Transmission Date: 20180508
  Serious: Yes (Hospitalization)
  Sender: FDA-Public Use
  Company Number: US-ACTELION-A-US2017-162704

PATIENT
  Age: 86 Year
  Sex: Female
  Weight: 86.62 kg

DRUGS (2)
  1. UPTRAVI [Suspect]
     Active Substance: SELEXIPAG
     Indication: PULMONARY ARTERIAL HYPERTENSION
     Dosage: 200 MCG, BID
     Route: 048
     Dates: start: 20171109, end: 20171111
  2. ADCIRCA [Concomitant]
     Active Substance: TADALAFIL

REACTIONS (12)
  - Nervousness [Unknown]
  - Syncope [Unknown]
  - Urine output increased [Unknown]
  - Hypotension [Unknown]
  - Muscle spasms [Unknown]
  - Fluid retention [Unknown]
  - Limb discomfort [Unknown]
  - Tremor [Unknown]
  - Dehydration [Unknown]
  - Blood electrolytes decreased [Unknown]
  - Pain in extremity [Unknown]
  - Headache [Unknown]

NARRATIVE: CASE EVENT DATE: 20171109
